FAERS Safety Report 22102413 (Version 9)
Quarter: 2023Q2

REPORT INFORMATION
  Report Type: Report from Study
  Country: AR (occurrence: None)
  Receive Date: 20230316
  Receipt Date: 20230621
  Transmission Date: 20230722
  Serious: Yes (Hospitalization)
  Sender: FDA-Public Use
  Company Number: AR-ROCHE-3301281

PATIENT
  Age: 26 Year
  Sex: Female
  Weight: 74.5 kg

DRUGS (6)
  1. MOSUNETUZUMAB [Suspect]
     Active Substance: MOSUNETUZUMAB
     Indication: B-cell lymphoma
     Dosage: ON 01/MAR/2023, SHE RECEIVED MOST RECENT DOSE 45 MG OF STUDY DRUG MOSUNETUZUMAB PRIOR TO AE/SAE.?ON
     Route: 058
     Dates: start: 20230222
  2. POLATUZUMAB VEDOTIN [Suspect]
     Active Substance: POLATUZUMAB VEDOTIN
     Indication: B-cell lymphoma
     Dosage: ON 22/FEB/2023, SHE RECEIVED MOST RECENT DOSE 140 MG OF STUDY DRUG POLATUZUMAB VEDOTIN PRIOR TO AE/S
     Route: 042
     Dates: start: 20230222
  3. TOCILIZUMAB [Suspect]
     Active Substance: TOCILIZUMAB
     Indication: Cytokine release syndrome
     Route: 042
     Dates: start: 20230305
  4. FILGRASTIM [Concomitant]
     Active Substance: FILGRASTIM
     Indication: Neutropenia
     Route: 058
     Dates: start: 20230321, end: 20230324
  5. FILGRASTIM [Concomitant]
     Active Substance: FILGRASTIM
     Dates: start: 20230403, end: 20230406
  6. VALGANCICLOVIR [Concomitant]
     Active Substance: VALGANCICLOVIR
     Indication: Cytomegalovirus infection reactivation
     Route: 048
     Dates: start: 20230412

REACTIONS (3)
  - Cytokine release syndrome [Recovered/Resolved]
  - Tumour flare [Not Recovered/Not Resolved]
  - Alanine aminotransferase increased [Recovered/Resolved]

NARRATIVE: CASE EVENT DATE: 20230302
